FAERS Safety Report 14098342 (Version 2)
Quarter: 2017Q4

REPORT INFORMATION
  Report Type: Spontaneous
  Country: US (occurrence: US)
  Receive Date: 20171016
  Receipt Date: 20171018
  Transmission Date: 20180321
  Serious: No
  Sender: FDA-Public Use
  Company Number: US-AMGEN-USASP2017054439

PATIENT
  Age: 78 Year
  Sex: Female
  Weight: 53.52 kg

DRUGS (10)
  1. PROLIA [Suspect]
     Active Substance: DENOSUMAB
     Indication: OSTEOPOROSIS POSTMENOPAUSAL
  2. CALCIUM [Concomitant]
     Active Substance: CALCIUM
     Dosage: 1000 MG, QD
  3. PROGESTERONE. [Concomitant]
     Active Substance: PROGESTERONE
     Indication: BONE DISORDER
     Dosage: UNK
  4. TESTOSTERONE. [Concomitant]
     Active Substance: TESTOSTERONE
     Indication: BONE DISORDER
     Dosage: UNK
  5. ESTRIOL [Concomitant]
     Active Substance: ESTRIOL
     Indication: BONE DISORDER
     Dosage: UNK
  6. ESTROGEN [Concomitant]
     Active Substance: ESTROGENS
     Dosage: UNK
  7. LISINOPRIL. [Concomitant]
     Active Substance: LISINOPRIL
     Dosage: 5 MG, UNK
  8. PROLIA [Suspect]
     Active Substance: DENOSUMAB
     Indication: OSTEOPOROSIS
     Dosage: 60 MG, Q6MO
     Route: 065
     Dates: start: 20170201, end: 201703
  9. VITAMIN D3 [Concomitant]
     Active Substance: CHOLECALCIFEROL
     Dosage: 3000 IU, UNK
  10. ESTRADIOL. [Concomitant]
     Active Substance: ESTRADIOL
     Indication: BONE DISORDER
     Dosage: UNK

REACTIONS (35)
  - Disturbance in attention [Unknown]
  - Headache [Recovered/Resolved]
  - Balance disorder [Not Recovered/Not Resolved]
  - Weight decreased [Unknown]
  - Discomfort [Recovering/Resolving]
  - Adverse reaction [Unknown]
  - Depression [Unknown]
  - Bone pain [Recovering/Resolving]
  - Feeling jittery [Unknown]
  - Confusional state [Not Recovered/Not Resolved]
  - Nervousness [Unknown]
  - Oropharyngeal pain [Not Recovered/Not Resolved]
  - Vitamin D decreased [Unknown]
  - Fatigue [Not Recovered/Not Resolved]
  - Feeling abnormal [Unknown]
  - Chest pain [Unknown]
  - White blood cell count decreased [Unknown]
  - Loss of personal independence in daily activities [Unknown]
  - Dysphagia [Unknown]
  - Abdominal discomfort [Unknown]
  - Sciatica [Unknown]
  - Pain [Not Recovered/Not Resolved]
  - Hypersomnia [Unknown]
  - Anxiety [Not Recovered/Not Resolved]
  - Sneezing [Unknown]
  - Back pain [Recovered/Resolved]
  - Gait disturbance [Unknown]
  - Asthenia [Unknown]
  - Dizziness [Not Recovered/Not Resolved]
  - Chest discomfort [Unknown]
  - Dyspnoea [Unknown]
  - Vitamin D increased [Not Recovered/Not Resolved]
  - Dysphonia [Unknown]
  - Nausea [Unknown]
  - Dry throat [Not Recovered/Not Resolved]

NARRATIVE: CASE EVENT DATE: 2017
